FAERS Safety Report 7067342-5 (Version None)
Quarter: 2010Q4

REPORT INFORMATION
  Report Type: 
  Country: None (occurrence: None)
  Receive Date: 20101022
  Receipt Date: 20101022
  Transmission Date: 20110411
  Serious: No
  Sender: FDA-Public Use
  Company Number: None

PATIENT
  Age: 55 Year
  Sex: Male
  Weight: 53.6 kg

DRUGS (6)
  1. DOCETAXEL [Suspect]
     Indication: NON-SMALL CELL LUNG CANCER
     Dosage: 75MG/M2 IV Q 21 DAYS
     Route: 042
     Dates: start: 20100817, end: 20100907
  2. APRICOXIB/PLACEBO [Suspect]
     Indication: NON-SMALL CELL LUNG CANCER
     Dosage: 400MG PO DAILY
     Route: 048
     Dates: start: 20100817
  3. FENTANYL [Concomitant]
  4. DEXAMETHASONE [Concomitant]
  5. ZOFRAN [Concomitant]
  6. COMPAZINE [Concomitant]

REACTIONS (10)
  - BULLOUS LUNG DISEASE [None]
  - CHEST DISCOMFORT [None]
  - CHEST PAIN [None]
  - CHILLS [None]
  - CHRONIC OBSTRUCTIVE PULMONARY DISEASE [None]
  - CONDITION AGGRAVATED [None]
  - DYSPNOEA [None]
  - MASS [None]
  - PRODUCTIVE COUGH [None]
  - PYREXIA [None]
